FAERS Safety Report 5385194-6 (Version None)
Quarter: 2007Q3

REPORT INFORMATION
  Report Type: 
  Country: None (occurrence: None)
  Receive Date: 20070712
  Receipt Date: 20070702
  Transmission Date: 20080115
  Serious: No
  Sender: FDA-Public Use
  Company Number: US-JNJFOC-20070602681

PATIENT
  Sex: Female
  Weight: 72.58 kg

DRUGS (5)
  1. DURAGESIC-100 [Suspect]
     Indication: PAIN
     Route: 062
  2. XANAX [Concomitant]
     Indication: ANXIETY
     Dosage: AT BEDTIME
     Route: 048
  3. AMITRIPTYLINE HCL [Concomitant]
     Dosage: AT BEDTIME
     Route: 048
  4. PHENERGAN HCL [Concomitant]
     Indication: NAUSEA
     Route: 048
  5. OXYCODONE HCL [Concomitant]
     Indication: BREAKTHROUGH PAIN
     Route: 048

REACTIONS (5)
  - CROHN'S DISEASE [None]
  - DEHYDRATION [None]
  - VOMITING [None]
  - WEIGHT DECREASED [None]
  - WRONG TECHNIQUE IN DRUG USAGE PROCESS [None]
